FAERS Safety Report 18169175 (Version 1)
Quarter: 2020Q3

REPORT INFORMATION
  Report Type: Spontaneous
  Country: CN (occurrence: CN)
  Receive Date: 20200818
  Receipt Date: 20200818
  Transmission Date: 20201103
  Serious: Yes (Other)
  Sender: FDA-Public Use
  Company Number: CN-US-PROVELL PHARMACEUTICALS LLC-E2B_90079421

PATIENT
  Sex: Male

DRUGS (1)
  1. EUTHYROX [Suspect]
     Active Substance: LEVOTHYROXINE SODIUM
     Indication: POST PROCEDURAL HYPOTHYROIDISM
     Dates: start: 201906

REACTIONS (4)
  - Wrong technique in product usage process [Unknown]
  - Dyspnoea [Unknown]
  - Near death experience [Unknown]
  - Asthenia [Unknown]

NARRATIVE: CASE EVENT DATE: 201906
